FAERS Safety Report 8219535-9 (Version None)
Quarter: 2012Q1

REPORT INFORMATION
  Report Type: 
  Country: None (occurrence: None)
  Receive Date: 20120319
  Receipt Date: 20120315
  Transmission Date: 20120608
  Serious: Yes (Death, Other)
  Sender: FDA-Public Use
  Company Number: PHHY2012US022907

PATIENT
  Age: 60 Year
  Sex: Male

DRUGS (4)
  1. FLUDARABINE PHOSPHATE [Concomitant]
     Dosage: 24 MG/M2, UNK
  2. TACROLIMUS [Suspect]
  3. MELPHALAN HYDROCHLORIDE [Concomitant]
     Dosage: 100 MG, UNK
  4. ALEMTUZUMAB [Concomitant]
     Dosage: 20 MG, UNK

REACTIONS (4)
  - MULTI-ORGAN FAILURE [None]
  - CARDIAC FAILURE CONGESTIVE [None]
  - ECHOLALIA [None]
  - CONFUSIONAL STATE [None]
